FAERS Safety Report 8511204-0 (Version None)
Quarter: 2012Q3

REPORT INFORMATION
  Report Type: 
  Country: None (occurrence: None)
  Receive Date: 20120716
  Receipt Date: 20120712
  Transmission Date: 20120928
  Serious: Yes (Other)
  Sender: FDA-Public Use
  Company Number: PHHY2012KR059990

PATIENT
  Age: 34 Year
  Sex: Female

DRUGS (2)
  1. CIMETIDINE [Suspect]
     Dosage: 200 MG, UNK
     Route: 048
  2. CIMETIDINE [Suspect]
     Dosage: 200 MG, UNK
     Route: 042

REACTIONS (2)
  - ANGIOEDEMA [None]
  - URTICARIA [None]
